FAERS Safety Report 5663168-5 (Version None)
Quarter: 2008Q1

REPORT INFORMATION
  Report Type: 
  Country: None (occurrence: None)
  Receive Date: 20080313
  Receipt Date: 20080301
  Transmission Date: 20080703
  Serious: Yes (Other)
  Sender: FDA-Public Use
  Company Number: US-PFIZER INC-2008009661

PATIENT
  Age: 55 Year
  Sex: Female
  Weight: 122.5 kg

DRUGS (2)
  1. PREGABALIN [Suspect]
     Indication: DIABETIC NEUROPATHY
     Route: 048
     Dates: start: 20070501, end: 20071121
  2. PREGABALIN [Suspect]
     Indication: NEURALGIA

REACTIONS (3)
  - ASTHMA [None]
  - DYSPNOEA [None]
  - OEDEMA [None]
